FAERS Safety Report 7952594-7 (Version None)
Quarter: 2011Q4

REPORT INFORMATION
  Report Type: 
  Country: None (occurrence: None)
  Receive Date: 20111201
  Receipt Date: 20111123
  Transmission Date: 20120403
  Serious: Yes (Hospitalization, Other)
  Sender: FDA-Public Use
  Company Number: US-ABBOTT-11P-163-0700653-00

PATIENT
  Sex: Female
  Weight: 61.29 kg

DRUGS (7)
  1. MULTI-VITAMINS [Concomitant]
     Indication: PREGNANCY
  2. HUMIRA [Suspect]
     Indication: RHEUMATOID ARTHRITIS
     Dates: start: 20081001
  3. UNKNOWN MEDICATION [Concomitant]
     Indication: CONTRACEPTION
  4. MULTI-VITAMINS [Concomitant]
     Indication: VITAMIN SUPPLEMENTATION
  5. WELLBUTRIN [Concomitant]
     Indication: PRODUCT USED FOR UNKNOWN INDICATION
  6. HUMIRA [Suspect]
     Indication: CROHN'S DISEASE
  7. ZANTAC [Concomitant]
     Indication: GASTROOESOPHAGEAL REFLUX DISEASE

REACTIONS (9)
  - NASOPHARYNGITIS [None]
  - BRONCHITIS [None]
  - SUPPRESSED LACTATION [None]
  - HYPERTENSION [None]
  - MUSCULOSKELETAL STIFFNESS [None]
  - MIGRAINE [None]
  - MOBILITY DECREASED [None]
  - BACTERIAL TOXAEMIA [None]
  - LACTATION DISORDER [None]
